FAERS Safety Report 6610180-5 (Version None)
Quarter: 2010Q1

REPORT INFORMATION
  Report Type: 
  Country: None (occurrence: None)
  Receive Date: 20100216
  Receipt Date: 20090327
  Transmission Date: 20100710
  Serious: Yes (Other)
  Sender: FDA-Public Use
  Company Number: MC200900126

PATIENT
  Sex: Male

DRUGS (2)
  1. ANGIOMAX [Suspect]
     Indication: PERCUTANEOUS CORONARY INTERVENTION
     Dosage: 0.75 MG/KG, BOLUS, INTRAVENOUS; 1.75 MG/KG, HR  INTRAVENOUS;
     Route: 042
  2. PLAVIX [Concomitant]

REACTIONS (2)
  - ELECTROCARDIOGRAM CHANGE [None]
  - THROMBOSIS IN DEVICE [None]
